FAERS Safety Report 6298852-6 (Version None)
Quarter: 2009Q3

REPORT INFORMATION
  Report Type: 
  Country: None (occurrence: None)
  Receive Date: 20090806
  Receipt Date: 20070504
  Transmission Date: 20100115
  Serious: Yes (Hospitalization)
  Sender: FDA-Public Use
  Company Number: US-ASTRAZENECA-2006UW26111

PATIENT
  Age: 13647 Day
  Sex: Male
  Weight: 90.7 kg

DRUGS (13)
  1. SEROQUEL [Suspect]
     Indication: SLEEP DISORDER THERAPY
     Dosage: 25 MG TWO TABLETS AT NIGHT
     Route: 048
     Dates: start: 20020212, end: 20021112
  2. PROZAC [Concomitant]
     Indication: DEPRESSION
     Dosage: 20 MG - 80 MG
     Dates: start: 19981119
  3. BUSPAR [Concomitant]
     Dosage: 15 MG - 150 MG
     Dates: start: 20040428
  4. CARBATROL [Concomitant]
     Dosage: 300 MG - 900 MG
     Dates: start: 20020529
  5. ALTACE [Concomitant]
     Indication: HYPERTENSION
     Dates: start: 19980320
  6. LIPITOR [Concomitant]
     Dates: start: 20030528
  7. TRAZODONE HCL [Concomitant]
     Dosage: 100 MG - 200 MG
     Dates: start: 20000428
  8. SYNTHROID [Concomitant]
     Dates: start: 20051207
  9. ACCUPRIL [Concomitant]
     Dates: start: 20050602
  10. AVANDAMET [Concomitant]
     Dosage: 1/500 TWO TIMES A DAY
     Dates: start: 20030528
  11. ZYPREXA [Concomitant]
     Dosage: 2.5 MG - 50 MG
     Dates: start: 20021112
  12. THEOPHYLLINE [Concomitant]
     Dates: start: 19980320
  13. CORTISONE [Concomitant]
     Indication: MUSCULOSKELETAL PAIN
     Dates: start: 20000901

REACTIONS (6)
  - ARTHROPATHY [None]
  - MUSCULOSKELETAL PAIN [None]
  - OSTEOARTHRITIS [None]
  - ROTATOR CUFF SYNDROME [None]
  - TRAUMATIC ARTHRITIS [None]
  - TYPE 2 DIABETES MELLITUS [None]
